FAERS Safety Report 8102371-1 (Version None)
Quarter: 2012Q1

REPORT INFORMATION
  Report Type: 
  Country: None (occurrence: None)
  Receive Date: 20120201
  Receipt Date: 20120125
  Transmission Date: 20120608
  Serious: No
  Sender: FDA-Public Use
  Company Number: US-PFIZER INC-2012021850

PATIENT
  Sex: Male
  Weight: 74.83 kg

DRUGS (5)
  1. METOPROLOL [Concomitant]
     Indication: HYPERTENSION
  2. TIKOSYN [Suspect]
     Indication: ATRIAL FIBRILLATION
     Dosage: 500 UG, 2X/DAY
     Dates: start: 20111101
  3. MECLIZINE HCL [Suspect]
     Indication: DIZZINESS
     Dosage: 25 MG, AS NEEDED
  4. PRADAXA [Concomitant]
     Indication: ATRIAL FIBRILLATION
     Dosage: 150 MG, 2X/DAY
  5. METOPROLOL [Concomitant]
     Indication: ATRIAL FIBRILLATION
     Dosage: 150 MG, DAILY

REACTIONS (2)
  - SOMNOLENCE [None]
  - DIZZINESS [None]
